FAERS Safety Report 6458982-2 (Version None)
Quarter: 2009Q4

REPORT INFORMATION
  Report Type: 
  Country: None (occurrence: None)
  Receive Date: 20091125
  Receipt Date: 20091125
  Transmission Date: 20100525
  Serious: Yes (Life-Threatening, Disabling, Other)
  Sender: FDA-Public Use
  Company Number: None

PATIENT
  Age: 51 Year
  Sex: Male
  Weight: 56.6996 kg

DRUGS (2)
  1. TRAMADOL HCL [Suspect]
     Indication: BACK PAIN
     Dosage: 1 TO 2 A DAY ORAL
     Route: 048
     Dates: start: 20050101
  2. TRAMADOL HCL [Suspect]
     Indication: BACK PAIN
     Dosage: 1 TO 2 A DAY ORAL
     Route: 048
     Dates: start: 20091028

REACTIONS (5)
  - GASTRIC HAEMORRHAGE [None]
  - GASTRITIS [None]
  - GASTROOESOPHAGEAL REFLUX DISEASE [None]
  - HIATUS HERNIA [None]
  - OESOPHAGITIS [None]
